FAERS Safety Report 24645869 (Version 5)
Quarter: 2025Q3

REPORT INFORMATION
  Report Type: Report from Study
  Country: AU (occurrence: AU)
  Receive Date: 20241121
  Receipt Date: 20250812
  Transmission Date: 20251020
  Serious: Yes (Other)
  Sender: NOVARTIS
  Company Number: AU-002147023-NVSC2024AU184415

PATIENT
  Sex: Female

DRUGS (2)
  1. COSENTYX [Suspect]
     Active Substance: SECUKINUMAB
     Indication: Ankylosing spondylitis
     Route: 058
     Dates: start: 20240810
  2. COSENTYX [Suspect]
     Active Substance: SECUKINUMAB
     Dosage: 300 MG, QMO
     Route: 058

REACTIONS (15)
  - Lower respiratory tract infection [Unknown]
  - Ankylosing spondylitis [Unknown]
  - Injection site bruising [Unknown]
  - Muscle spasms [Unknown]
  - Nasopharyngitis [Recovering/Resolving]
  - Pain in extremity [Unknown]
  - Joint swelling [Unknown]
  - Synovial rupture [Unknown]
  - Joint stiffness [Unknown]
  - Arthralgia [Unknown]
  - Inappropriate schedule of product administration [Unknown]
  - Bronchitis [Recovered/Resolved]
  - Pain [Not Recovered/Not Resolved]
  - Peripheral swelling [Unknown]
  - Drug ineffective [Unknown]

NARRATIVE: CASE EVENT DATE: 20240101
